FAERS Safety Report 18423798 (Version 9)
Quarter: 2021Q3

REPORT INFORMATION
  Report Type: Report from Study
  Country: US (occurrence: US)
  Receive Date: 20201024
  Receipt Date: 20210810
  Transmission Date: 20211014
  Serious: Yes (Death, Life-Threatening, Hospitalization, Other)
  Sender: FDA-Public Use
  Company Number: US-AMGEN-USACT2020172017

PATIENT
  Age: 71 Year
  Sex: Male
  Weight: 86.2 kg

DRUGS (24)
  1. TALIMOGENE LAHERPAREPVEC [Suspect]
     Active Substance: TALIMOGENE LAHERPAREPVEC
     Dosage: 10^8 PFU/ML ON DAY: 01 (CYCLE 02), Q2WK
     Route: 036
     Dates: end: 20200924
  2. ENOXAPARIN [Concomitant]
     Active Substance: ENOXAPARIN
  3. BETAMETHASONE. [Concomitant]
     Active Substance: BETAMETHASONE
  4. ONDANSETRON [Concomitant]
     Active Substance: ONDANSETRON
  5. OXYCODONE [Concomitant]
     Active Substance: OXYCODONE
  6. GABAPENTIN. [Concomitant]
     Active Substance: GABAPENTIN
  7. METHADONE [Concomitant]
     Active Substance: METHADONE HYDROCHLORIDE
  8. METRONIDAZOLE. [Concomitant]
     Active Substance: METRONIDAZOLE
  9. MORPHINE [Concomitant]
     Active Substance: MORPHINE
  10. SIMVASTATIN. [Concomitant]
     Active Substance: SIMVASTATIN
  11. ESOMEPRAZOLE. [Concomitant]
     Active Substance: ESOMEPRAZOLE MAGNESIUM
  12. LACTULOSE. [Concomitant]
     Active Substance: LACTULOSE
  13. LIDOCAINE PRILOCAINE BIOGARAN [Concomitant]
  14. TADALAFIL. [Concomitant]
     Active Substance: TADALAFIL
  15. VITAMIN C ACID [Concomitant]
     Active Substance: ASCORBIC ACID
     Dosage: UNK
  16. FISH OIL [Concomitant]
     Active Substance: FISH OIL
  17. SENNA [Concomitant]
     Active Substance: SENNA LEAF\SENNOSIDES\SENNOSIDES A AND B
  18. NIVOLUMAB [Suspect]
     Active Substance: NIVOLUMAB
     Indication: SQUAMOUS CELL CARCINOMA OF SKIN
     Dosage: 3 MILLIGRAM/KILOGRAM
     Route: 042
     Dates: start: 20200902, end: 20200924
  19. POLYETHYLENE GLYCOL [MACROGOL] [Concomitant]
     Active Substance: POLYETHYLENE GLYCOLS
  20. TALIMOGENE LAHERPAREPVEC [Suspect]
     Active Substance: TALIMOGENE LAHERPAREPVEC
     Indication: SQUAMOUS CELL CARCINOMA OF SKIN
     Dosage: 10^6 PFU/ML ON DAY: 01 (CYCLE 01), Q3WK
     Route: 036
     Dates: start: 20200902
  21. ACETAMINOPHEN. [Concomitant]
     Active Substance: ACETAMINOPHEN
  22. HYDROMORPHONE [Concomitant]
     Active Substance: HYDROMORPHONE
  23. LIDOCAINE. [Concomitant]
     Active Substance: LIDOCAINE
  24. HYPOCHLOROUS ACID;SODIUM CHLORIDE [Concomitant]

REACTIONS (7)
  - Death [Fatal]
  - Herpes virus infection [Not Recovered/Not Resolved]
  - Hypoxia [Unknown]
  - Sepsis [Recovered/Resolved]
  - Hypotension [Unknown]
  - Confusional state [Not Recovered/Not Resolved]
  - Rash vesicular [Unknown]

NARRATIVE: CASE EVENT DATE: 202009
